FAERS Safety Report 19806984 (Version 1)
Quarter: 2021Q3

REPORT INFORMATION
  Report Type: Spontaneous
  Country: PT (occurrence: PT)
  Receive Date: 20210908
  Receipt Date: 20210908
  Transmission Date: 20211014
  Serious: Yes (Other)
  Sender: FDA-Public Use
  Company Number: PT-COLLEGIUM PHARMACEUTICAL, INC.-2021CGM00957

PATIENT
  Age: 76 Year
  Sex: Female

DRUGS (7)
  1. TAPENTADOL [Suspect]
     Active Substance: TAPENTADOL
     Indication: PAIN IN EXTREMITY
     Dosage: 50 MG, 2X/DAY
     Route: 048
  2. SINEMET [Concomitant]
     Active Substance: CARBIDOPA\LEVODOPA
  3. ROSUVASTATINE [Concomitant]
     Active Substance: ROSUVASTATIN
  4. ALLOPURINOL. [Concomitant]
     Active Substance: ALLOPURINOL
  5. PAROXETINE. [Concomitant]
     Active Substance: PAROXETINE
  6. ANASTROZOLE. [Concomitant]
     Active Substance: ANASTROZOLE
  7. TAPENTADOL [Suspect]
     Active Substance: TAPENTADOL
     Indication: BACK PAIN
     Dosage: 50 MG
     Route: 048
     Dates: start: 202107, end: 202107

REACTIONS (4)
  - Dysstasia [Recovered/Resolved]
  - Dizziness [Recovered/Resolved]
  - Self-medication [Unknown]
  - Urinary tract infection [Unknown]

NARRATIVE: CASE EVENT DATE: 20210810
